FAERS Safety Report 21397620 (Version 1)
Quarter: 2022Q3

REPORT INFORMATION
  Report Type: Report from Study
  Country: TW (occurrence: TW)
  Receive Date: 20220930
  Receipt Date: 20220930
  Transmission Date: 20221027
  Serious: Yes (Hospitalization)
  Sender: FDA-Public Use
  Company Number: TW-AstraZeneca-2022A211884

PATIENT
  Age: 65 Year
  Sex: Female

DRUGS (6)
  1. FAM-TRASTUZUMAB DERUXTECAN-NXKI [Suspect]
     Active Substance: FAM-TRASTUZUMAB DERUXTECAN-NXKI
     Indication: Non-small cell lung cancer
     Dosage: UNK
     Route: 042
  2. DIETARY SUPPLEMENT\HERBALS\MILK THISTLE [Concomitant]
     Active Substance: DIETARY SUPPLEMENT\HERBALS\MILK THISTLE
     Route: 048
     Dates: start: 20220527
  3. ZCOUGH [Concomitant]
     Dosage: 100 MG
     Route: 048
     Dates: start: 20220527
  4. OPIODUR [Concomitant]
     Dosage: 12 UG
     Route: 061
  5. PIRENOXINE [Concomitant]
     Active Substance: PIRENOXINE
  6. MORPHINE SULFATE [Concomitant]
     Active Substance: MORPHINE SULFATE
     Dosage: 15 MG
     Dates: start: 20220603

REACTIONS (1)
  - Hepatitis [Recovering/Resolving]

NARRATIVE: CASE EVENT DATE: 20220527
